FAERS Safety Report 17283174 (Version 3)
Quarter: 2022Q1

REPORT INFORMATION
  Report Type: Spontaneous
  Country: US (occurrence: US)
  Receive Date: 20200117
  Receipt Date: 20220228
  Transmission Date: 20220423
  Serious: No
  Sender: FDA-Public Use
  Company Number: US-PFIZER INC-2019160066

PATIENT
  Age: 48 Year
  Weight: 97.52 kg

DRUGS (5)
  1. DILANTIN [Suspect]
     Active Substance: PHENYTOIN
     Indication: Seizure
     Dosage: 500 MG, DAILY
  2. DILANTIN [Suspect]
     Active Substance: PHENYTOIN
     Dosage: 100 MG (100MG, TAKES ABOUT 4-5 TIMES A DAY BY MOUTH)
     Route: 048
  3. TEGRETOL [Concomitant]
     Active Substance: CARBAMAZEPINE
     Indication: Seizure
     Dosage: 200 MG, 2X/DAY (TAKES THREE IN THE MORNING AND TWO AT NIGHT)
     Route: 048
  4. LOSARTAN [Concomitant]
     Active Substance: LOSARTAN
     Indication: Hypertension
     Dosage: UNK
  5. METFORMIN [Concomitant]
     Active Substance: METFORMIN HYDROCHLORIDE
     Indication: Type 2 diabetes mellitus
     Dosage: UNK

REACTIONS (2)
  - Cough [Unknown]
  - Dry throat [Unknown]
